FAERS Safety Report 21736064 (Version 1)
Quarter: 2022Q4

REPORT INFORMATION
  Report Type: Spontaneous
  Country: US (occurrence: US)
  Receive Date: 20221215
  Receipt Date: 20221215
  Transmission Date: 20230112
  Serious: No
  Sender: FDA-Public Use
  Company Number: US-NOVOPROD-908153

PATIENT
  Age: 66 Year
  Sex: Female

DRUGS (1)
  1. LEVEMIR [Suspect]
     Active Substance: INSULIN DETEMIR
     Indication: Type 2 diabetes mellitus
     Dosage: 25 IU, QD
     Route: 058
     Dates: start: 2021

REACTIONS (5)
  - Illness [Not Recovered/Not Resolved]
  - Vomiting [Recovered/Resolved]
  - Wrong technique in product usage process [Recovered/Resolved]
  - Product dose omission issue [Recovered/Resolved]
  - Product communication issue [Recovered/Resolved]

NARRATIVE: CASE EVENT DATE: 20220201
